FAERS Safety Report 9258181 (Version 1)
Quarter: 2013Q2

REPORT INFORMATION
  Report Type: Other
  Country: JP (occurrence: JP)
  Receive Date: 20130426
  Receipt Date: 20130426
  Transmission Date: 20140414
  Serious: Yes (Disabling)
  Sender: FDA-Public Use
  Company Number: JP-BRISTOL-MYERS SQUIBB COMPANY-18808964

PATIENT
  Age: 56 Year
  Sex: Female
  Weight: 47 kg

DRUGS (1)
  1. PARAPLATIN [Suspect]
     Indication: UTERINE CANCER
     Dosage: RECENT DOSE: 13-APR-2012
     Route: 042
     Dates: end: 20120413

REACTIONS (1)
  - Posterior reversible encephalopathy syndrome [Recovered/Resolved]
